FAERS Safety Report 8452914 (Version 2)
Quarter: 2013Q2

REPORT INFORMATION
  Report Type: Spontaneous
  Country: US (occurrence: None)
  Receive Date: 20120221
  Receipt Date: 20120521
  Transmission Date: 20140414
  Serious: Yes (Hospitalization)
  Sender: FDA-Public Use
  Company Number: 044816

PATIENT
  Age: 53 Year
  Sex: Female

DRUGS (2)
  1. LACOSAMIDE [Suspect]
  2. BOTOX [Suspect]
     Indication: CEREBRAL PALSY

REACTIONS (1)
  - FATIGUE [None]
